FAERS Safety Report 9393336 (Version 2)
Quarter: 2015Q1

REPORT INFORMATION
  Report Type: Spontaneous
  Country: FR (occurrence: FR)
  Receive Date: 20130710
  Receipt Date: 20150317
  Transmission Date: 20150721
  Serious: Yes (Hospitalization, Disabling, Other)
  Sender: FDA-Public Use
  Company Number: FR-PFIZER INC-2013197474

PATIENT
  Age: 85 Year
  Sex: Female

DRUGS (16)
  1. DAFALGAN [Concomitant]
     Active Substance: ACETAMINOPHEN
     Dosage: 500 MG, UNK
  2. LEXOMIL [Concomitant]
     Active Substance: BROMAZEPAM
  3. FORLAX [Concomitant]
     Active Substance: POLYETHYLENE GLYCOL 4000
     Dosage: 10 G, UNK
  4. FURADANTINE [Concomitant]
     Active Substance: NITROFURANTOIN
     Dosage: 50 MG, UNK
  5. LOVENOX [Concomitant]
     Active Substance: ENOXAPARIN SODIUM
  6. INEXIUM [Concomitant]
     Active Substance: ESOMEPRAZOLE
     Dosage: 20 MG, UNK
  7. GAVISCON [Concomitant]
     Active Substance: ALUMINUM HYDROXIDE\MAGNESIUM CARBONATE
  8. TAHOR [Suspect]
     Active Substance: ATORVASTATIN CALCIUM
     Dosage: 10 MG, 1X/DAY
     Route: 048
  9. LASILIX [Concomitant]
     Active Substance: FUROSEMIDE
  10. ALLOPURINOL. [Concomitant]
     Active Substance: ALLOPURINOL
  11. PREVISCAN [Concomitant]
     Active Substance: FLUINDIONE
     Dosage: 20 MG, UNK
  12. TEMERIT [Concomitant]
     Active Substance: NEBIVOLOL
     Dosage: 5 MG, UNK
  13. UVEDOSE [Concomitant]
     Active Substance: CHOLECALCIFEROL
  14. CIPROFLOXACIN. [Suspect]
     Active Substance: CIPROFLOXACIN
     Indication: URINARY TRACT INFECTION
     Dosage: 500 MG, 2X/DAY
     Route: 048
     Dates: start: 20120727, end: 20120808
  15. PRIMPERAN [Concomitant]
     Active Substance: METOCLOPRAMIDE HYDROCHLORIDE
  16. DIFFU K [Concomitant]
     Active Substance: POTASSIUM CHLORIDE

REACTIONS (1)
  - Foot fracture [Recovered/Resolved with Sequelae]

NARRATIVE: CASE EVENT DATE: 20120808
